FAERS Safety Report 6209137-8 (Version None)
Quarter: 2009Q2

REPORT INFORMATION
  Report Type: 
  Country: None (occurrence: None)
  Receive Date: 20090529
  Receipt Date: 20090518
  Transmission Date: 20091009
  Serious: Yes (Other)
  Sender: FDA-Public Use
  Company Number: GB-JNJFOC-20090504334

PATIENT
  Age: 69 Year
  Sex: Male
  Weight: 77 kg

DRUGS (10)
  1. REMICADE [Suspect]
     Indication: RHEUMATOID ARTHRITIS
     Route: 042
  2. LEFLUNOMIDE [Concomitant]
  3. PREDNISOLONE [Concomitant]
  4. AMITRIPTLINE HYDROCHLORIDE TAB [Concomitant]
  5. DIHYDROCODEINE BITARTRATE INJ [Concomitant]
  6. FOLIC ACID [Concomitant]
  7. LACIDIPINE [Concomitant]
  8. LISINOPRIL [Concomitant]
  9. RANITIDINE [Concomitant]
  10. DIDRONEL [Concomitant]

REACTIONS (1)
  - PROSTATE CANCER [None]
